FAERS Safety Report 10070027 (Version 1)
Quarter: 2014Q2

REPORT INFORMATION
  Report Type: Spontaneous
  Country: US (occurrence: None)
  Receive Date: 20140408
  Receipt Date: 20140408
  Transmission Date: 20141212
  Serious: Yes (Death)
  Sender: FDA-Public Use
  Company Number: CC14-0427

PATIENT
  Age: 81 Year
  Sex: Male

DRUGS (1)
  1. IMIQUIMOD [Suspect]
     Indication: BASAL CELL CARCINOMA
     Dosage: ONCE DAILY, 6 OR 12 WEEKS

REACTIONS (2)
  - Myocardial infarction [None]
  - Myocardial ischaemia [None]
